FAERS Safety Report 5750305-7 (Version None)
Quarter: 2008Q2

REPORT INFORMATION
  Report Type: 
  Country: None (occurrence: None)
  Receive Date: 20080521
  Receipt Date: 20080521
  Transmission Date: 20081010
  Serious: Yes (Other)
  Sender: FDA-Public Use
  Company Number: None

PATIENT
  Age: 59 Year
  Sex: Female
  Weight: 79.3795 kg

DRUGS (2)
  1. RECLAST [Suspect]
     Indication: BONE SCAN
     Dates: start: 20080429, end: 20080429
  2. RECLAST [Suspect]
     Indication: OSTEOPOROSIS
     Dates: start: 20080429, end: 20080429

REACTIONS (5)
  - BONE PAIN [None]
  - FATIGUE [None]
  - GAIT DISTURBANCE [None]
  - PAIN [None]
  - SENSATION OF HEAVINESS [None]
